FAERS Safety Report 15310212 (Version 3)
Quarter: 2018Q4

REPORT INFORMATION
  Report Type: Report from Study
  Country: JP (occurrence: JP)
  Receive Date: 20180823
  Receipt Date: 20181116
  Transmission Date: 20190204
  Serious: Yes (Hospitalization)
  Sender: FDA-Public Use
  Company Number: JP-JT-EVA201802284KERYXP-001

PATIENT
  Age: 73 Year
  Sex: Female
  Weight: 65 kg

DRUGS (13)
  1. CALCITRIOL. [Concomitant]
     Active Substance: CALCITRIOL
     Indication: HYPERPARATHYROIDISM SECONDARY
     Dosage: 0.25 MICRO-G, Q24H
     Route: 048
     Dates: start: 20170911
  2. EQUA [Concomitant]
     Active Substance: VILDAGLIPTIN
     Dosage: 50 MG, Q24H
     Route: 048
  3. GLUFAST OD [Concomitant]
     Dosage: 10 MG, Q24H
     Route: 048
  4. LUPRAC [Concomitant]
     Active Substance: TORSEMIDE
     Dosage: 4 MG, Q24H
     Route: 048
  5. MIRCERA [Concomitant]
     Active Substance: METHOXY POLYETHYLENE GLYCOL-EPOETIN BETA
     Dosage: 50 MICRO-G, Q3MO
     Route: 065
  6. FUROSEMIDE. [Concomitant]
     Active Substance: FUROSEMIDE
     Dosage: 20 MG, Q24H
     Route: 048
  7. RIONA [Suspect]
     Active Substance: FERRIC CITRATE ANHYDROUS
     Indication: HYPERPHOSPHATAEMIA
     Dosage: 750 MG, QD
     Route: 048
     Dates: start: 20170926
  8. CRESTOR OD [Concomitant]
     Active Substance: ROSUVASTATIN CALCIUM
     Dosage: 2.5 MG, Q24H
     Route: 048
  9. MIRCERA [Concomitant]
     Active Substance: METHOXY POLYETHYLENE GLYCOL-EPOETIN BETA
     Indication: NEPHROGENIC ANAEMIA
     Dosage: 50 MICRO-G, 5 DOSES IN 3 MONTHS
     Route: 065
  10. AMLODIPINE [Concomitant]
     Active Substance: AMLODIPINE BESYLATE
     Dosage: 5 MG, Q24H
     Route: 048
  11. TAKECAB [Concomitant]
     Active Substance: VONOPRAZAN FUMURATE
     Indication: HYPERCHLORHYDRIA
     Dosage: 10 MG, Q24H
     Route: 048
     Dates: start: 20171031
  12. NIFEDIPINE. [Concomitant]
     Active Substance: NIFEDIPINE
     Dosage: 20 MG, Q24H
     Route: 048
  13. SPIRONOLACTONE. [Concomitant]
     Active Substance: SPIRONOLACTONE
     Dosage: 12.5 MG, Q24H
     Route: 048
     Dates: start: 20180127

REACTIONS (2)
  - Catheter site infection [Recovering/Resolving]
  - Peritonitis [Recovered/Resolved]

NARRATIVE: CASE EVENT DATE: 20180109
